FAERS Safety Report 14785300 (Version 1)
Quarter: 2018Q2

REPORT INFORMATION
  Report Type: Spontaneous
  Country: US (occurrence: US)
  Receive Date: 20180420
  Receipt Date: 20180420
  Transmission Date: 20180711
  Serious: No
  Sender: FDA-Public Use
  Company Number: US-ASTRAZENECA-2018SE39059

PATIENT
  Sex: Female

DRUGS (6)
  1. RALOXIFENE. [Concomitant]
     Active Substance: RALOXIFENE
  2. EVISTA [Concomitant]
     Active Substance: RALOXIFENE HYDROCHLORIDE
  3. SYMBICORT [Suspect]
     Active Substance: BUDESONIDE\FORMOTEROL FUMARATE DIHYDRATE
     Indication: DYSPNOEA
     Dosage: 80/4.5, UNKNOWN UNKNOWN
     Route: 055
  4. KLONOPIN [Concomitant]
     Active Substance: CLONAZEPAM
  5. NORTRIPTYLINE [Concomitant]
     Active Substance: NORTRIPTYLINE
  6. CEVIMELINE. [Concomitant]
     Active Substance: CEVIMELINE

REACTIONS (12)
  - Dysgeusia [Unknown]
  - Pain [Unknown]
  - Dysphonia [Unknown]
  - Intentional product misuse [Unknown]
  - Medication error [Unknown]
  - Rales [Unknown]
  - Drug dose omission [Unknown]
  - Dyspnoea [Unknown]
  - Laryngitis [Unknown]
  - Burning mouth syndrome [Unknown]
  - Weight decreased [Unknown]
  - Off label use [Unknown]
